FAERS Safety Report 5627015-X (Version None)
Quarter: 2008Q1

REPORT INFORMATION
  Report Type: 
  Country: None (occurrence: None)
  Receive Date: 20080122
  Receipt Date: 20071115
  Transmission Date: 20080703
  Serious: Yes (Life-Threatening)
  Sender: FDA-Public Use
  Company Number: PHEH2007US14876

PATIENT
  Age: 55 Year
  Sex: Female
  Weight: 122.4 kg

DRUGS (2)
  1. EXFORGE [Suspect]
     Indication: HYPERTENSION
     Dosage: 5/160MG, QD, ORAL
     Route: 048
     Dates: start: 20071030
  2. DIOVAN [Concomitant]

REACTIONS (3)
  - DYSPNOEA [None]
  - PRURITUS GENERALISED [None]
  - RESPIRATORY THERAPY [None]
